FAERS Safety Report 4331104-X (Version None)
Quarter: 2004Q1

REPORT INFORMATION
  Report Type: 
  Country: None (occurrence: None)
  Receive Date: 20040331
  Receipt Date: 20040317
  Transmission Date: 20041129
  Serious: Yes (Other)
  Sender: FDA-Public Use
  Company Number: 2004018273

PATIENT
  Age: 71 Year
  Sex: Male

DRUGS (2)
  1. VIAGRA [Suspect]
     Indication: ILL-DEFINED DISORDER
  2. ACETYLSALICYLIC ACID SRT [Concomitant]

REACTIONS (7)
  - OPTIC ATROPHY [None]
  - OPTIC ISCHAEMIC NEUROPATHY [None]
  - PAPILLOEDEMA [None]
  - PUPILLARY DISORDER [None]
  - RETINAL ARTERY EMBOLISM [None]
  - RETINAL HAEMORRHAGE [None]
  - VISUAL FIELD DEFECT [None]
